FAERS Safety Report 4936379-1 (Version None)
Quarter: 2006Q1

REPORT INFORMATION
  Report Type: 
  Country: None (occurrence: None)
  Receive Date: 20060127
  Receipt Date: 20051017
  Transmission Date: 20060701
  Serious: Yes (Other)
  Sender: FDA-Public Use
  Company Number: 2005143678

PATIENT
  Age: 52 Year
  Sex: Female
  Weight: 77.1115 kg

DRUGS (12)
  1. LYRICA [Suspect]
     Indication: NEUROPATHY
     Dosage: 150 MG (75 MG, 2 IN 1 D), ORAL
     Route: 048
     Dates: start: 20050901
  2. PAXIL [Concomitant]
  3. TOPAMAX [Concomitant]
  4. ZOCOR [Concomitant]
  5. FLEXERIL [Concomitant]
  6. SONATA [Concomitant]
  7. CLARITIN [Concomitant]
  8. COZAAR [Concomitant]
  9. WARFARIN SODIUM [Concomitant]
  10. DIAZEPAM [Concomitant]
  11. NOVOLON (INSULIN HUMAN INJECTION, ISOPHANE) [Concomitant]
  12. NOVOLOG [Concomitant]

REACTIONS (5)
  - DISTURBANCE IN ATTENTION [None]
  - SUDDEN ONSET OF SLEEP [None]
  - VISION BLURRED [None]
  - VISUAL ACUITY REDUCED [None]
  - WEIGHT INCREASED [None]
